FAERS Safety Report 17454556 (Version 1)
Quarter: 2020Q1

REPORT INFORMATION
  Report Type: Spontaneous
  Country: US (occurrence: US)
  Receive Date: 20200224
  Receipt Date: 20200224
  Transmission Date: 20200409
  Serious: Yes (Hospitalization)
  Sender: FDA-Public Use
  Company Number: None

PATIENT
  Age: 59 Year
  Sex: Female

DRUGS (15)
  1. GLATIRAMER [Suspect]
     Active Substance: GLATIRAMER
     Indication: MULTIPLE SCLEROSIS
     Dosage: ?          OTHER FREQUENCY:TIW;?
     Route: 058
     Dates: start: 20190212
  2. CARAFATE [Concomitant]
     Active Substance: SUCRALFATE
  3. NEXIUM [Concomitant]
     Active Substance: ESOMEPRAZOLE MAGNESIUM
  4. ASPIRIN. [Concomitant]
     Active Substance: ASPIRIN
  5. VITAMIN B12 [Concomitant]
     Active Substance: CYANOCOBALAMIN
  6. BACLOFEN. [Concomitant]
     Active Substance: BACLOFEN
  7. COPAXONE [Concomitant]
     Active Substance: GLATIRAMER ACETATE
  8. ZALEPLON. [Concomitant]
     Active Substance: ZALEPLON
  9. SEROQUEL [Concomitant]
     Active Substance: QUETIAPINE FUMARATE
  10. MULTI VIT [Concomitant]
     Active Substance: VITAMINS
  11. PRISTIQ EXTENDED-RELEASE [Concomitant]
     Active Substance: DESVENLAFAXINE SUCCINATE
  12. ALPRAZOLAM. [Concomitant]
     Active Substance: ALPRAZOLAM
  13. ATENONOL [Concomitant]
  14. BUT/APAP [Concomitant]
  15. OXYBUTYNIN. [Concomitant]
     Active Substance: OXYBUTYNIN CHLORIDE

REACTIONS (2)
  - Skin cancer [None]
  - Urinary tract disorder [None]

NARRATIVE: CASE EVENT DATE: 20200221
